FAERS Safety Report 7135722-5 (Version None)
Quarter: 2010Q4

REPORT INFORMATION
  Report Type: 
  Country: None (occurrence: None)
  Receive Date: 20101203
  Receipt Date: 20101119
  Transmission Date: 20110411
  Serious: Yes (Other)
  Sender: FDA-Public Use
  Company Number: ES-ELI_LILLY_AND_COMPANY-ES201011005443

PATIENT
  Sex: Female
  Weight: 65 kg

DRUGS (6)
  1. FORTEO [Suspect]
     Indication: OSTEOPOROSIS
     Dosage: 20 UG, DAILY (1/D)
     Route: 058
     Dates: start: 20100806, end: 20101105
  2. ADOLONTA [Concomitant]
     Indication: PAIN
     Dosage: UNK, EVERY 8 HRS
     Route: 048
  3. BONADOXIN [Concomitant]
     Dosage: UNK, UNKNOWN
     Route: 048
  4. OPENVAS [Concomitant]
     Dosage: UNK, DAILY (1/D)
     Route: 048
  5. TORSEMIDE [Concomitant]
     Dosage: UNK, UNKNOWN
     Route: 048
  6. PERVONE [Concomitant]
     Dosage: UNK, DAILY (1/D)
     Route: 048

REACTIONS (2)
  - CONVULSION [None]
  - MALAISE [None]
